FAERS Safety Report 20665123 (Version 1)
Quarter: 2022Q2

REPORT INFORMATION
  Report Type: Spontaneous
  Country: US (occurrence: US)
  Receive Date: 20220401
  Receipt Date: 20220401
  Transmission Date: 20220720
  Serious: No
  Sender: FDA-Public Use
  Company Number: US-PFIZER INC-202101128057

PATIENT
  Age: 49 Year
  Sex: Female
  Weight: 40.816 kg

DRUGS (1)
  1. INLYTA [Suspect]
     Active Substance: AXITINIB
     Indication: Renal cell carcinoma
     Dosage: 3 MG, 2X/DAY
     Route: 048
     Dates: start: 20210710

REACTIONS (3)
  - Dysphagia [Unknown]
  - Pharyngeal disorder [Unknown]
  - Oral disorder [Unknown]
